FAERS Safety Report 5225404-9 (Version None)
Quarter: 2006Q4

REPORT INFORMATION
  Report Type: 
  Country: None (occurrence: None)
  Receive Date: 20061201
  Receipt Date: 20060907
  Transmission Date: 20070319
  Serious: Yes (Hospitalization)
  Sender: FDA-Public Use
  Company Number: US200609001737

PATIENT
  Age: 20 Year
  Sex: Female
  Weight: 61.2 kg

DRUGS (2)
  1. CYMBALTA [Suspect]
     Indication: MAJOR DEPRESSION
     Dosage: 10 MG
     Dates: start: 20060425, end: 20060425
  2. WELLBUTRIN SR [Concomitant]

REACTIONS (2)
  - GASTRITIS [None]
  - MEDICATION ERROR [None]
